FAERS Safety Report 6295892-8 (Version None)
Quarter: 2009Q3

REPORT INFORMATION
  Report Type: 
  Country: None (occurrence: None)
  Receive Date: 20090804
  Receipt Date: 20090723
  Transmission Date: 20100115
  Serious: Yes (Other)
  Sender: FDA-Public Use
  Company Number: PHHY2009JP29379

PATIENT
  Age: 62 Year
  Sex: Female

DRUGS (2)
  1. ZOMETA [Suspect]
     Indication: METASTASES TO BONE
     Route: 042
  2. COMBINATIONS OF ANTINEOPLASTIC AGENTS [Concomitant]
     Indication: METASTASES TO LUNG
     Dosage: UNK
     Dates: start: 20040101

REACTIONS (6)
  - BONE DISORDER [None]
  - FACIAL PALSY [None]
  - GINGIVAL ABSCESS [None]
  - JAW FRACTURE [None]
  - JAW OPERATION [None]
  - OSTEOMYELITIS [None]
